FAERS Safety Report 24071878 (Version 1)
Quarter: 2024Q3

REPORT INFORMATION
  Report Type: Report from Study
  Country: DE (occurrence: DE)
  Receive Date: 20240710
  Receipt Date: 20240710
  Transmission Date: 20241016
  Serious: No
  Sender: ROCHE
  Company Number: DE-ROCHE-3305496

PATIENT
  Age: 13 Year
  Sex: Female
  Weight: 42.5 kg

DRUGS (5)
  1. RISDIPLAM [Suspect]
     Active Substance: RISDIPLAM
     Indication: Spinal muscular atrophy
     Dosage: LAST DOSE:29/MAR/2023?LAST DOSE:05/OCT/2022?LAST DOSE: 27/MAR/2024
     Route: 048
     Dates: start: 20211206
  2. POLYETHYLENE GLYCOLS [Concomitant]
     Active Substance: POLYETHYLENE GLYCOLS
     Dates: start: 20211110
  3. ETHINYL ESTRADIOL [Concomitant]
     Active Substance: ETHINYL ESTRADIOL
     Dates: start: 202212
  4. IBUPROFEN [Concomitant]
     Active Substance: IBUPROFEN
     Indication: Product used for unknown indication
     Route: 065
     Dates: start: 202307
  5. MONK^S PEPPER [Concomitant]
     Indication: Product used for unknown indication
     Route: 065
     Dates: start: 202212

REACTIONS (3)
  - Respiratory tract infection [Recovered/Resolved]
  - Tonsillitis [Recovered/Resolved]
  - Pharyngitis [Recovered/Resolved]

NARRATIVE: CASE EVENT DATE: 20220919
